FAERS Safety Report 7495121-3 (Version None)
Quarter: 2011Q2

REPORT INFORMATION
  Report Type: 
  Country: None (occurrence: None)
  Receive Date: 20110520
  Receipt Date: 20110518
  Transmission Date: 20111010
  Serious: Yes (Other)
  Sender: FDA-Public Use
  Company Number: GB-GILEAD-E2B_00001279

PATIENT
  Age: 50 Year
  Sex: Male

DRUGS (8)
  1. TRUVADA [Suspect]
  2. DARUNAVIR [Concomitant]
  3. TRUVADA [Suspect]
     Indication: HIV INFECTION
     Dosage: 1 TAB ONCE A DAY; RECEIVED TWICE DAILY FOR 5 DAYS PRIOR TO CLINIC VISIT
     Route: 048
     Dates: start: 20090911
  4. RITONAVIR [Concomitant]
  5. COTRIM [Concomitant]
  6. CITALOPRAM HYDROBROMIDE [Concomitant]
  7. ITRACONAZOLE [Concomitant]
  8. TRUVADA [Suspect]
     Dosage: 1 TAB ONCE A DAY; RECEIVED TWICE DAILY FOR 5 DAYS PRIOR TO CLINIC VISIT
     Route: 048
     Dates: end: 20110510

REACTIONS (4)
  - ACCIDENTAL OVERDOSE [None]
  - RENAL TUBULAR NECROSIS [None]
  - GLYCOSURIA [None]
  - PROTEINURIA [None]
